FAERS Safety Report 15277775 (Version 1)
Quarter: 2018Q3

REPORT INFORMATION
  Report Type: Spontaneous
  Country: US (occurrence: US)
  Receive Date: 20180730
  Receipt Date: 20180730
  Transmission Date: 20181010
  Serious: Yes (Disabling)
  Sender: FDA-Public Use
  Company Number: None

PATIENT
  Age: 52 Year
  Sex: Female
  Weight: 56.25 kg

DRUGS (2)
  1. HERCEPTIN [Suspect]
     Active Substance: TRASTUZUMAB
     Indication: HER-2 POSITIVE BREAST CANCER
     Route: 042
     Dates: start: 20170830, end: 20180730
  2. MULTI VITAMINS [Concomitant]
     Active Substance: VITAMINS

REACTIONS (2)
  - Product label issue [None]
  - Arthralgia [None]

NARRATIVE: CASE EVENT DATE: 20180730
